FAERS Safety Report 9008697 (Version 2)
Quarter: 2013Q1

REPORT INFORMATION
  Report Type: Spontaneous
  Country: FR (occurrence: FR)
  Receive Date: 20130111
  Receipt Date: 20130307
  Transmission Date: 20140127
  Serious: Yes (Death, Hospitalization)
  Sender: FDA-Public Use
  Company Number: FR-ELI_LILLY_AND_COMPANY-FR201301003270

PATIENT
  Age: 70 Year
  Sex: Female

DRUGS (2)
  1. ALIMTA [Suspect]
     Indication: LUNG ADENOCARCINOMA
     Dosage: 750 MG, EVERY 3 WEEKS
     Route: 042
     Dates: start: 20121003, end: 20121024
  2. CARBOPLATINE TEVA [Concomitant]
     Indication: LUNG ADENOCARCINOMA
     Dosage: 500 MG, EVERY 3 WEEKS
     Dates: start: 20121003, end: 20121024

REACTIONS (4)
  - Toxic epidermal necrolysis [Fatal]
  - Bone marrow failure [Unknown]
  - Septic shock [Unknown]
  - Off label use [Unknown]
